FAERS Safety Report 5699599-7 (Version None)
Quarter: 2008Q2

REPORT INFORMATION
  Report Type: 
  Country: None (occurrence: None)
  Receive Date: 20080410
  Receipt Date: 20080110
  Transmission Date: 20081010
  Serious: No
  Sender: FDA-Public Use
  Company Number: US-KINGPHARMUSA00001-K200800040

PATIENT

DRUGS (1)
  1. THROMBIN-JMI [Suspect]
     Indication: LIMB OPERATION
     Dosage: 20000 U, SINGLE
     Route: 058
     Dates: start: 20080110, end: 20080110

REACTIONS (2)
  - INCORRECT ROUTE OF DRUG ADMINISTRATION [None]
  - NO ADVERSE EVENT [None]
